FAERS Safety Report 25335730 (Version 1)
Quarter: 2025Q2

REPORT INFORMATION
  Report Type: Spontaneous
  Country: US (occurrence: None)
  Receive Date: 20250519
  Receipt Date: 20250519
  Transmission Date: 20250716
  Serious: Yes (Other)
  Sender: FDA-CTU
  Company Number: None

PATIENT
  Age: 29 Year
  Sex: Female

DRUGS (27)
  1. ESCITALOPRAM [Suspect]
     Active Substance: ESCITALOPRAM OXALATE
     Indication: Depression
     Dosage: 1 TABLET DAILY ORAL ?
     Route: 048
     Dates: start: 20250418
  2. ESCITALOPRAM [Suspect]
     Active Substance: ESCITALOPRAM OXALATE
     Indication: Post-traumatic stress disorder
  3. ESCITALOPRAM [Suspect]
     Active Substance: ESCITALOPRAM OXALATE
     Indication: Anxiety
  4. TRAZODONE HYDROCHLORIDE [Suspect]
     Active Substance: TRAZODONE HYDROCHLORIDE
     Indication: Product dispensing error
     Route: 048
     Dates: start: 20250519, end: 20250519
  5. LEXAPRO [Concomitant]
     Active Substance: ESCITALOPRAM OXALATE
  6. VYVANSE [Concomitant]
     Active Substance: LISDEXAMFETAMINE DIMESYLATE
  7. PROPRANOLOL HYDROCHLORIDE [Concomitant]
     Active Substance: PROPRANOLOL HYDROCHLORIDE
  8. TRAZODONE [Concomitant]
     Active Substance: TRAZODONE HYDROCHLORIDE
  9. KLONOPIN [Concomitant]
     Active Substance: CLONAZEPAM
  10. Ketamine (Spravato) [Concomitant]
  11. Topical Testosterone [Concomitant]
  12. FLONASE [Concomitant]
     Active Substance: FLUTICASONE PROPIONATE
  13. NAC [Concomitant]
  14. VITAMIN C [Concomitant]
     Active Substance: ASCORBIC ACID
  15. Seed DS-01 [Concomitant]
  16. Daily Probiotic [Concomitant]
  17. TYROSINE [Concomitant]
     Active Substance: TYROSINE
  18. POTASSIUM CITRATE [Concomitant]
     Active Substance: POTASSIUM CITRATE
  19. Vitamin D3 5000 IU [Concomitant]
  20. Nordic Naturals Ultimate Omega [Concomitant]
  21. VITAMINS [Concomitant]
     Active Substance: VITAMINS
  22. Hum Nutrition Daily Cleanse [Concomitant]
  23. Hum Nutrition Flatter Me ExtraStrength [Concomitant]
  24. MAGNESIUM GLYCINATE [Concomitant]
     Active Substance: MAGNESIUM GLYCINATE
  25. Doctor^s Best Serrapeptase [Concomitant]
  26. Cycle Serenity [Concomitant]
  27. Optimized Saffron [Concomitant]

REACTIONS (10)
  - Fatigue [None]
  - Accidental exposure to product [None]
  - Product commingling [None]
  - Product dispensing error [None]
  - Product administration error [None]
  - Wrong product administered [None]
  - Therapy interrupted [None]
  - Product dispensing error [None]
  - Incorrect dose administered [None]
  - Headache [None]

NARRATIVE: CASE EVENT DATE: 20250519
